FAERS Safety Report 4881623-2 (Version None)
Quarter: 2006Q1

REPORT INFORMATION
  Report Type: 
  Country: None (occurrence: None)
  Receive Date: 20060116
  Receipt Date: 20060109
  Transmission Date: 20060701
  Serious: Yes (Other)
  Sender: FDA-Public Use
  Company Number: PHBS2006CH00666

PATIENT
  Age: 72 Year
  Sex: Female

DRUGS (6)
  1. AREDIA [Suspect]
     Indication: MULTIPLE MYELOMA
     Route: 065
     Dates: start: 20030617, end: 20030901
  2. PREDNISONE [Concomitant]
  3. EPREX [Concomitant]
  4. CALCIUM SANDOZ [Concomitant]
  5. BURGERSTEIN VITAMIN B6 [Concomitant]
  6. ZOMETA [Suspect]
     Indication: MULTIPLE MYELOMA
     Route: 065
     Dates: start: 20031029

REACTIONS (11)
  - BONE DISORDER [None]
  - GINGIVAL OPERATION [None]
  - GINGIVITIS [None]
  - IMPAIRED HEALING [None]
  - OSTEOLYSIS [None]
  - OSTEOMYELITIS [None]
  - OSTEONECROSIS [None]
  - PAIN IN JAW [None]
  - PERIODONTITIS [None]
  - TOOTH EXTRACTION [None]
  - TOOTHACHE [None]
